FAERS Safety Report 7234999-5 (Version None)
Quarter: 2011Q1

REPORT INFORMATION
  Report Type: 
  Country: None (occurrence: None)
  Receive Date: 20110120
  Receipt Date: 20110113
  Transmission Date: 20110831
  Serious: Yes (Hospitalization)
  Sender: FDA-Public Use
  Company Number: IE-AMGEN-IRLSP2011002383

PATIENT

DRUGS (8)
  1. LANSOPRAZOLE [Concomitant]
  2. CELLCEPT [Concomitant]
  3. PREDNISOLONE [Concomitant]
  4. ARANESP [Suspect]
     Indication: RENAL FAILURE CHRONIC
     Dosage: 30 A?G, Q2WK
     Route: 058
  5. CYCLOSPORINE [Concomitant]
  6. ALLOPURINOL [Concomitant]
  7. CARDURA [Concomitant]
  8. IDEOS                              /00944201/ [Concomitant]

REACTIONS (1)
  - LOWER RESPIRATORY TRACT INFECTION [None]
